FAERS Safety Report 4375177-7 (Version None)
Quarter: 2004Q2

REPORT INFORMATION
  Report Type: 
  Country: None (occurrence: None)
  Receive Date: 20040607
  Receipt Date: 20030423
  Transmission Date: 20050107
  Serious: Yes (Other)
  Sender: FDA-Public Use
  Company Number: 336687

PATIENT

DRUGS (1)
  1. ACCUTANE [Suspect]
     Indication: DRUG USE FOR UNKNOWN INDICATION
     Dates: start: 19950615, end: 19960615

REACTIONS (3)
  - ADVERSE EVENT [None]
  - NO ADVERSE DRUG EFFECT [None]
  - PREGNANCY [None]
